FAERS Safety Report 18448440 (Version 1)
Quarter: 2020Q4

REPORT INFORMATION
  Report Type: Spontaneous
  Country: US (occurrence: US)
  Receive Date: 20201031
  Receipt Date: 20201031
  Transmission Date: 20210114
  Serious: No
  Sender: FDA-Public Use
  Company Number: US-GRANULES-US-2020GRASPO00022

PATIENT
  Age: 54 Year
  Sex: Female
  Weight: 220 kg

DRUGS (2)
  1. METFORMIN HYDROCHLORIDE. [Suspect]
     Active Substance: METFORMIN HYDROCHLORIDE
     Indication: BLOOD OESTROGEN
     Route: 048
     Dates: start: 201912
  2. AMLODIPINE [Concomitant]
     Active Substance: AMLODIPINE BESYLATE
     Indication: HYPERTENSION
     Route: 065

REACTIONS (4)
  - Fatigue [Recovered/Resolved]
  - Product use in unapproved indication [Unknown]
  - Impaired work ability [Recovered/Resolved]
  - Social avoidant behaviour [Recovered/Resolved]

NARRATIVE: CASE EVENT DATE: 202001
